FAERS Safety Report 7008487-5 (Version None)
Quarter: 2010Q3

REPORT INFORMATION
  Report Type: 
  Country: None (occurrence: None)
  Receive Date: 20100922
  Receipt Date: 20100914
  Transmission Date: 20110219
  Serious: No
  Sender: FDA-Public Use
  Company Number: US-PFIZER INC-2010116439

PATIENT
  Age: 19 Year
  Sex: Male

DRUGS (2)
  1. GEODON [Suspect]
     Dosage: UNK
     Route: 048
  2. GEODON [Suspect]
     Dosage: 80 MG IN EVENING, 40MG IN MORNING

REACTIONS (2)
  - COUGH [None]
  - GASTROOESOPHAGEAL REFLUX DISEASE [None]
